FAERS Safety Report 8273442-4 (Version None)
Quarter: 2012Q2

REPORT INFORMATION
  Report Type: 
  Country: None (occurrence: None)
  Receive Date: 20120411
  Receipt Date: 20120403
  Transmission Date: 20120825
  Serious: Yes (Hospitalization)
  Sender: FDA-Public Use
  Company Number: US-BAYER-2012-009255

PATIENT
  Age: 17 Year
  Sex: Female

DRUGS (9)
  1. YASMIN [Suspect]
     Dosage: UNK
     Route: 048
     Dates: start: 20110101, end: 20110701
  2. ACETAMINOPHEN [Concomitant]
     Indication: PAIN
     Dosage: 650 MG, PRN
     Route: 048
  3. MOTRIN [Concomitant]
  4. IBUPROFEN (ADVIL) [Concomitant]
     Route: 048
  5. DROSPIRENONE AND ETHINYL ESTRADIOL [Suspect]
     Dosage: UNK
     Route: 048
     Dates: start: 20110101, end: 20110701
  6. IBUPROFEN [Concomitant]
     Indication: MIGRAINE
     Dosage: 200 MG, UNK
     Route: 048
  7. XOPENEX [Concomitant]
     Indication: ASTHMA
     Route: 055
  8. DEXAMETHASONE [Concomitant]
     Dosage: 0.5 MG, UNK
     Dates: start: 20110614
  9. ULTRAM [Concomitant]

REACTIONS (7)
  - PULMONARY EMBOLISM [None]
  - PAIN [None]
  - ANXIETY [None]
  - DEEP VEIN THROMBOSIS [None]
  - EMOTIONAL DISTRESS [None]
  - INJURY [None]
  - GENERAL PHYSICAL HEALTH DETERIORATION [None]
